FAERS Safety Report 15144407 (Version 1)
Quarter: 2018Q3

REPORT INFORMATION
  Report Type: Spontaneous
  Country: US (occurrence: US)
  Receive Date: 20180713
  Receipt Date: 20180713
  Transmission Date: 20181010
  Serious: No
  Sender: FDA-Public Use
  Company Number: US-PERRIGO-18US004546

PATIENT
  Sex: Male

DRUGS (1)
  1. MINOXIDIL. [Suspect]
     Active Substance: MINOXIDIL
     Indication: ALOPECIA
     Dosage: 1ML, 1 TO 2 TIMES DAILY
     Route: 061
     Dates: start: 2018, end: 20180419

REACTIONS (4)
  - Application site dryness [Recovering/Resolving]
  - Inappropriate schedule of drug administration [Recovered/Resolved]
  - Product administered at inappropriate site [Recovered/Resolved]
  - Dandruff [Recovering/Resolving]

NARRATIVE: CASE EVENT DATE: 2018
